FAERS Safety Report 6253014-3 (Version None)
Quarter: 2009Q2

REPORT INFORMATION
  Report Type: 
  Country: None (occurrence: None)
  Receive Date: 20090629
  Receipt Date: 20090612
  Transmission Date: 20091009
  Serious: Yes (Other)
  Sender: FDA-Public Use
  Company Number: 82515

PATIENT
  Sex: Male

DRUGS (2)
  1. ACETYLCYSTEINE [Suspect]
     Indication: BLOOD CREATININE INCREASED
     Dosage: 600MG BID X 3 DAYS PO
     Route: 048
  2. ACETYLCYSTEINE [Suspect]
     Indication: CATHETERISATION CARDIAC
     Dosage: 600MG BID X 3 DAYS PO
     Route: 048

REACTIONS (2)
  - CIRCUMSTANCE OR INFORMATION CAPABLE OF LEADING TO MEDICATION ERROR [None]
  - MEDICATION ERROR [None]
